FAERS Safety Report 4959022-4 (Version None)
Quarter: 2006Q1

REPORT INFORMATION
  Report Type: 
  Country: None (occurrence: None)
  Receive Date: 20060324
  Receipt Date: 20060310
  Transmission Date: 20060701
  Serious: Yes (Death)
  Sender: FDA-Public Use
  Company Number: 2005SP004344

PATIENT
  Age: 80 Year
  Sex: Male
  Weight: 58.0604 kg

DRUGS (6)
  1. XOPENEX [Suspect]
     Indication: CHRONIC OBSTRUCTIVE PULMONARY DISEASE
     Dosage: 0.63 MG; TID
     Dates: start: 20051202, end: 20060210
  2. IPRATROPIUM BROMIDE [Concomitant]
  3. ALBUTEROL [Concomitant]
  4. ADVAIR DISKUS 100/50 [Concomitant]
  5. THEOPHYLLINE [Concomitant]
  6. LORAZEPAM [Concomitant]

REACTIONS (2)
  - FEELING ABNORMAL [None]
  - GLOSSODYNIA [None]
